FAERS Safety Report 6020301-3 (Version None)
Quarter: 2008Q4

REPORT INFORMATION
  Report Type: 
  Country: None (occurrence: None)
  Receive Date: 20081223
  Receipt Date: 20081223
  Transmission Date: 20090506
  Serious: Yes (Hospitalization, Other)
  Sender: FDA-Public Use
  Company Number: None

PATIENT
  Age: 36 Year
  Sex: Female
  Weight: 54.4316 kg

DRUGS (1)
  1. LEXAPRO [Suspect]
     Indication: ANXIETY
     Dosage: 1 DOSE/ 10MG 1 TIME PO
     Route: 048
     Dates: start: 20081217

REACTIONS (14)
  - ANXIETY [None]
  - COORDINATION ABNORMAL [None]
  - DIPLOPIA [None]
  - DYSPNOEA [None]
  - FEELING COLD [None]
  - HEADACHE [None]
  - HOT FLUSH [None]
  - MUSCULAR WEAKNESS [None]
  - NAUSEA [None]
  - PALPITATIONS [None]
  - TREMOR [None]
  - VERTIGO [None]
  - VISION BLURRED [None]
  - VOMITING [None]
